FAERS Safety Report 6837039-2 (Version None)
Quarter: 2010Q3

REPORT INFORMATION
  Report Type: 
  Country: None (occurrence: None)
  Receive Date: 20100713
  Receipt Date: 20070501
  Transmission Date: 20110219
  Serious: No
  Sender: FDA-Public Use
  Company Number: US-PFIZER INC-2007036468

PATIENT
  Age: 64 Year
  Sex: Female
  Weight: 79.8 kg

DRUGS (12)
  1. CHANTIX [Suspect]
     Indication: SMOKING CESSATION THERAPY
  2. THEOPHYLLINE [Concomitant]
  3. MONTELUKAST SODIUM [Concomitant]
  4. COMBIVENT [Concomitant]
  5. ADVAIR DISKUS 100/50 [Concomitant]
  6. OMEPRAZOLE [Concomitant]
  7. FLUOXETINE HYDROCHLORIDE [Concomitant]
  8. HYDROCHLOROTHIAZIDE [Concomitant]
  9. TEMAZEPAM [Concomitant]
  10. QUININE [Concomitant]
  11. SPIRIVA [Concomitant]
  12. XOPENEX [Concomitant]

REACTIONS (2)
  - ABDOMINAL DISCOMFORT [None]
  - ABDOMINAL PAIN UPPER [None]
